FAERS Safety Report 16656579 (Version 1)
Quarter: 2019Q3

REPORT INFORMATION
  Report Type: Report from Study
  Country: SE (occurrence: SE)
  Receive Date: 20190801
  Receipt Date: 20190801
  Transmission Date: 20191004
  Serious: Yes (Other)
  Sender: FDA-Public Use
  Company Number: SE-ASTRAZENECA-2019SF06248

PATIENT
  Age: 52 Year
  Sex: Female

DRUGS (3)
  1. STATINS [Suspect]
     Active Substance: UNSPECIFIED INGREDIENT
     Route: 065
  2. EXENATIDE. [Suspect]
     Active Substance: EXENATIDE
     Indication: TYPE 2 DIABETES MELLITUS
     Route: 065
  3. METFORMIN [Concomitant]
     Active Substance: METFORMIN HYDROCHLORIDE
     Route: 065

REACTIONS (1)
  - Oedematous pancreatitis [Recovered/Resolved with Sequelae]
